FAERS Safety Report 6535073-3 (Version None)
Quarter: 2010Q1

REPORT INFORMATION
  Report Type: 
  Country: None (occurrence: None)
  Receive Date: 20100112
  Receipt Date: 20091229
  Transmission Date: 20100710
  Serious: Yes (Other)
  Sender: FDA-Public Use
  Company Number: US-MYLANLABS-2004S1003547

PATIENT
  Age: 5 Year
  Sex: Male

DRUGS (13)
  1. MERCAPTAMINE BITARTRATE [Suspect]
     Indication: CYSTINOSIS
     Route: 048
     Dates: start: 20010510, end: 20020129
  2. MERCAPTAMINE BITARTRATE [Suspect]
     Route: 048
     Dates: start: 20020130, end: 20030609
  3. MERCAPTAMINE BITARTRATE [Suspect]
     Route: 048
     Dates: start: 20030610, end: 20040621
  4. MERCAPTAMINE BITARTRATE [Suspect]
     Route: 048
     Dates: start: 20040622, end: 20041125
  5. MERCAPTAMINE BITARTRATE [Suspect]
     Route: 048
     Dates: start: 20041126, end: 20041202
  6. MERCAPTAMINE BITARTRATE [Suspect]
     Route: 048
     Dates: start: 20041203
  7. MERCAPTAMINE BITARTRATE [Suspect]
     Route: 048
  8. LEVOTHYROXINE SODIUM [Concomitant]
     Dates: start: 20030901
  9. SOMATROPIN [Concomitant]
     Dates: start: 20040401
  10. INDOMETHACIN [Concomitant]
     Dates: start: 20011101
  11. L-CARNITINE [Concomitant]
     Dates: start: 20030501
  12. POTASSIUM CITRATE [Concomitant]
     Dates: start: 20010501
  13. MERCAPTAMINE [Concomitant]
     Route: 047
     Dates: start: 20010501

REACTIONS (2)
  - FOOT DEFORMITY [None]
  - SKIN FRAGILITY [None]
